FAERS Safety Report 8016589-X (Version None)
Quarter: 2011Q4

REPORT INFORMATION
  Report Type: 
  Country: None (occurrence: None)
  Receive Date: 20111230
  Receipt Date: 20111221
  Transmission Date: 20120403
  Serious: Yes (Other)
  Sender: FDA-Public Use
  Company Number: US-ASTRAZENECA-2010SE12512

PATIENT
  Age: 51 Year
  Sex: Female

DRUGS (1)
  1. TOPROL-XL [Suspect]
     Route: 048

REACTIONS (6)
  - HEART RATE INCREASED [None]
  - DRUG DOSE OMISSION [None]
  - BRAIN OEDEMA [None]
  - MYOCARDIAL INFARCTION [None]
  - PULMONARY FIBROSIS [None]
  - CEREBROVASCULAR ACCIDENT [None]
